FAERS Safety Report 17526093 (Version 1)
Quarter: 2020Q1

REPORT INFORMATION
  Report Type: Spontaneous
  Country: GB (occurrence: GB)
  Receive Date: 20200311
  Receipt Date: 20200311
  Transmission Date: 20200409
  Serious: Yes (Hospitalization, Other)
  Sender: FDA-Public Use
  Company Number: GB-ACCORD-174949

PATIENT
  Age: 87 Year
  Sex: Male

DRUGS (10)
  1. BUMETANIDE. [Suspect]
     Active Substance: BUMETANIDE
     Indication: CARDIAC FAILURE
     Dosage: IN THE MORNING
     Route: 048
  2. ALLOPURINOL. [Concomitant]
     Active Substance: ALLOPURINOL
  3. FINASTERIDE. [Concomitant]
     Active Substance: FINASTERIDE
  4. SALBUTAMOL [Concomitant]
     Active Substance: ALBUTEROL
     Route: 055
  5. FLUTIFORM [Concomitant]
     Active Substance: FLUTICASONE PROPIONATE\FORMOTEROL FUMARATE
     Dosage: PUFFS. 250/10
     Route: 055
  6. FLUOXETINE [Concomitant]
     Active Substance: FLUOXETINE HYDROCHLORIDE
  7. SIMVASTATIN. [Concomitant]
     Active Substance: SIMVASTATIN
     Dosage: AT NIGHT
  8. APIXABAN [Concomitant]
     Active Substance: APIXABAN
  9. RAMIPRIL. [Suspect]
     Active Substance: RAMIPRIL
     Indication: CARDIAC FAILURE
     Dosage: IN THE MORNING
     Route: 048
     Dates: end: 20190910
  10. INDORAMIN [Concomitant]
     Active Substance: INDORAMIN

REACTIONS (7)
  - Hypophagia [Recovered/Resolved]
  - Dysuria [Recovered/Resolved]
  - Decreased appetite [Recovered/Resolved]
  - Dehydration [Recovered/Resolved]
  - Acute kidney injury [Recovered/Resolved]
  - Dyspnoea [Recovered/Resolved]
  - Blood pressure decreased [Recovered/Resolved]

NARRATIVE: CASE EVENT DATE: 20190910
